FAERS Safety Report 12624622 (Version 1)
Quarter: 2016Q3

REPORT INFORMATION
  Report Type: Report from Study
  Country: IE (occurrence: IE)
  Receive Date: 20160805
  Receipt Date: 20160805
  Transmission Date: 20161109
  Serious: Yes (Hospitalization, Other)
  Sender: FDA-Public Use
  Company Number: IE-AMGEN-IRLSL2016099680

PATIENT
  Age: 84 Year
  Sex: Female

DRUGS (7)
  1. DIOVAN [Concomitant]
     Active Substance: VALSARTAN
     Dosage: 80 MG, QD
  2. ARANESP [Suspect]
     Active Substance: DARBEPOETIN ALFA
     Indication: CHRONIC KIDNEY DISEASE
     Dosage: 30 MUG, QMO
     Route: 058
     Dates: start: 20151124
  3. ELTROXIN [Concomitant]
     Active Substance: LEVOTHYROXINE
     Dosage: 100 MUG, UNK
  4. GALFER [Concomitant]
     Active Substance: IRON
     Dosage: 305 MG, ALTERNATE DAYS
  5. ZANIDIP [Concomitant]
     Active Substance: LERCANIDIPINE HYDROCHLORIDE
     Dosage: 10 MG, UNK
  6. BURINEX [Concomitant]
     Active Substance: BUMETANIDE
     Dosage: 1 MG, ALTERNATE DAYS
  7. OMEPRAZOLE. [Concomitant]
     Active Substance: OMEPRAZOLE
     Dosage: 20 MG, QD

REACTIONS (2)
  - Vein disorder [Not Recovered/Not Resolved]
  - Cellulitis [Not Recovered/Not Resolved]

NARRATIVE: CASE EVENT DATE: 201606
